FAERS Safety Report 11931990 (Version 1)
Quarter: 2016Q1

REPORT INFORMATION
  Report Type: Spontaneous
  Country: US (occurrence: US)
  Receive Date: 20160120
  Receipt Date: 20160120
  Transmission Date: 20160526
  Serious: No
  Sender: FDA-Public Use
  Company Number: US-PFIZER INC-2016028133

PATIENT
  Age: 65 Year
  Sex: Female
  Weight: 68.4 kg

DRUGS (1)
  1. LYRICA [Suspect]
     Active Substance: PREGABALIN
     Indication: MOBILITY DECREASED
     Dosage: UNK

REACTIONS (3)
  - Arthralgia [Recovering/Resolving]
  - Product use issue [Unknown]
  - Musculoskeletal stiffness [Recovering/Resolving]
